FAERS Safety Report 18135429 (Version 1)
Quarter: 2020Q3

REPORT INFORMATION
  Report Type: Spontaneous
  Country: HR (occurrence: HR)
  Receive Date: 20200811
  Receipt Date: 20200811
  Transmission Date: 20201103
  Serious: Yes (Other)
  Sender: FDA-Public Use
  Company Number: HR-ASTRAZENECA-2020SE96579

PATIENT
  Sex: Female

DRUGS (4)
  1. PRAZINE (ALPRAZOLAM) [Suspect]
     Active Substance: ALPRAZOLAM
     Route: 048
  2. NORMABEL [Suspect]
     Active Substance: DIAZEPAM
     Route: 048
     Dates: start: 2020, end: 2020
  3. FEVARIN [Suspect]
     Active Substance: FLUVOXAMINE MALEATE
     Route: 048
  4. SEROQUEL XR [Suspect]
     Active Substance: QUETIAPINE FUMARATE
     Route: 048
     Dates: start: 2020, end: 2020

REACTIONS (4)
  - Suicide attempt [Unknown]
  - Loss of consciousness [Unknown]
  - Intentional overdose [Unknown]
  - Coma [Unknown]

NARRATIVE: CASE EVENT DATE: 202006
